FAERS Safety Report 4292599-3 (Version None)
Quarter: 2004Q1

REPORT INFORMATION
  Report Type: 
  Country: None (occurrence: None)
  Receive Date: 20040126
  Receipt Date: 20031020
  Transmission Date: 20041129
  Serious: No
  Sender: FDA-Public Use
  Company Number: USA031050400

PATIENT
  Age: 67 Year
  Sex: Female

DRUGS (6)
  1. FORTEO [Suspect]
     Indication: OSTEOPOROSIS
     Dates: start: 20031001
  2. KLONOPIN [Concomitant]
  3. NEURONTIN [Concomitant]
  4. DURATESTON [Concomitant]
  5. OXYGEN [Concomitant]
  6. ADVAIR DISKUS 100/50 [Concomitant]

REACTIONS (1)
  - INJECTION SITE HAEMORRHAGE [None]
